FAERS Safety Report 24205483 (Version 2)
Quarter: 2025Q1

REPORT INFORMATION
  Report Type: Spontaneous
  Country: US (occurrence: US)
  Receive Date: 20240813
  Receipt Date: 20250120
  Transmission Date: 20250408
  Serious: Yes (Other)
  Sender: PFIZER
  Company Number: US-PFIZER INC-PV202400103962

PATIENT
  Age: 57 Year
  Sex: Female

DRUGS (6)
  1. TUKYSA [Interacting]
     Active Substance: TUCATINIB
     Dosage: TAKE TWO TABLETS BY MOUTH TWICE DAILY
     Route: 048
  2. AMLODIPINE [Interacting]
     Active Substance: AMLODIPINE BESYLATE
  3. CAPECITABINE [Suspect]
     Active Substance: CAPECITABINE
  4. CLONIDINE [Concomitant]
     Active Substance: CLONIDINE
  5. ATENOLOL [Concomitant]
     Active Substance: ATENOLOL
  6. ATENOLOL [Concomitant]
     Active Substance: ATENOLOL

REACTIONS (2)
  - Radiotherapy to brain [Unknown]
  - Drug interaction [Unknown]
